FAERS Safety Report 6919606-0 (Version None)
Quarter: 2010Q3

REPORT INFORMATION
  Report Type: 
  Country: None (occurrence: None)
  Receive Date: 20100811
  Receipt Date: 20090831
  Transmission Date: 20110219
  Serious: Yes (Other)
  Sender: FDA-Public Use
  Company Number: HR-MERCK-0908USA04919

PATIENT
  Age: 31 Year
  Sex: Female

DRUGS (3)
  1. MAXALT-MLT [Suspect]
     Indication: MIGRAINE
     Route: 048
     Dates: start: 20090709, end: 20090709
  2. NORMABEL [Concomitant]
     Route: 048
  3. PRAZINE [Concomitant]
     Route: 048

REACTIONS (2)
  - CONVULSION [None]
  - DYSPNOEA [None]
